FAERS Safety Report 17839703 (Version 3)
Quarter: 2020Q2

REPORT INFORMATION
  Report Type: Spontaneous
  Country: HU (occurrence: HU)
  Receive Date: 20200529
  Receipt Date: 20200612
  Transmission Date: 20200714
  Serious: Yes (Other)
  Sender: FDA-Public Use
  Company Number: NVSC2020HU145677

PATIENT
  Age: 57 Year
  Sex: Female
  Weight: 88 kg

DRUGS (2)
  1. LETROZOLE. [Suspect]
     Active Substance: LETROZOLE
     Indication: BREAST CANCER STAGE IV
     Dosage: QD
     Route: 048
     Dates: start: 20190307
  2. RIBOCICLIB. [Suspect]
     Active Substance: RIBOCICLIB
     Indication: BREAST CANCER STAGE IV
     Dosage: TID
     Route: 048
     Dates: start: 20190307

REACTIONS (8)
  - Electrocardiogram P wave abnormal [Unknown]
  - Electrocardiogram low voltage [Unknown]
  - Neutropenia [Recovered/Resolved]
  - Asthenia [Unknown]
  - Thrombocytopenia [Recovered/Resolved]
  - Electrocardiogram QT prolonged [Recovered/Resolved]
  - Electrocardiogram QRS complex abnormal [Unknown]
  - Anaemia [Unknown]

NARRATIVE: CASE EVENT DATE: 20190401
